FAERS Safety Report 9765237 (Version 1)
Quarter: 2013Q4

REPORT INFORMATION
  Report Type: Spontaneous
  Country: US (occurrence: US)
  Receive Date: 20131217
  Receipt Date: 20131217
  Transmission Date: 20140711
  Serious: No
  Sender: FDA-Public Use
  Company Number: US-GLAXOSMITHKLINE-A1043914A

PATIENT
  Age: 69 Year
  Sex: Female

DRUGS (13)
  1. SORIATANE [Suspect]
     Indication: PSORIASIS
     Dosage: 25MG PER DAY
     Route: 048
     Dates: start: 20130919, end: 20131002
  2. CALCIUM + D [Concomitant]
  3. DIGOXIN [Concomitant]
  4. ECOTRIN [Concomitant]
  5. FLOVENT [Concomitant]
  6. FORADIL [Concomitant]
  7. FOSAMAX [Concomitant]
  8. FUROSEMIDE [Concomitant]
  9. ALBUTEROL NEBULIZER [Concomitant]
  10. METOPROLOL [Concomitant]
  11. MULTIVITAMIN [Concomitant]
  12. PEPCID [Concomitant]
  13. VENTOLIN [Concomitant]

REACTIONS (3)
  - Joint stiffness [Unknown]
  - Tinnitus [Unknown]
  - Drug ineffective [Unknown]
